FAERS Safety Report 6259090-6 (Version None)
Quarter: 2009Q3

REPORT INFORMATION
  Report Type: 
  Country: None (occurrence: None)
  Receive Date: 20090707
  Receipt Date: 20090623
  Transmission Date: 20100115
  Serious: Yes (Other)
  Sender: FDA-Public Use
  Company Number: NL-MYLANLABS-2009S1008496

PATIENT
  Age: 69 Year
  Sex: Female
  Weight: 68 kg

DRUGS (9)
  1. TAMOXIFEN CITRATE [Suspect]
     Indication: DRUG USE FOR UNKNOWN INDICATION
     Dates: start: 20080917, end: 20090301
  2. NITRAZEPAM [Concomitant]
     Indication: DRUG USE FOR UNKNOWN INDICATION
     Dates: start: 19940324
  3. OXAZEPAM [Concomitant]
     Indication: DRUG USE FOR UNKNOWN INDICATION
     Dates: start: 20071116, end: 20081001
  4. ALENDRONIC ACID [Concomitant]
     Indication: DRUG USE FOR UNKNOWN INDICATION
     Dates: start: 20080715
  5. COZAAR [Concomitant]
     Indication: DRUG USE FOR UNKNOWN INDICATION
     Dates: start: 20090608
  6. MEPILEX [Concomitant]
     Indication: DRUG USE FOR UNKNOWN INDICATION
     Dosage: 10 X 10 BANDAGE MATERIAL
     Dates: start: 20090604
  7. MEPILEX [Concomitant]
     Dosage: 10 X 10 BANDAGE MATERIAL
     Dates: start: 20090528
  8. PREDNISOLONE [Concomitant]
     Indication: DRUG USE FOR UNKNOWN INDICATION
     Dates: start: 20090528
  9. COZAAR [Concomitant]
     Dosage: 15 TABLETS , ONCE DAILY 1 TABLET
     Dates: start: 20090528

REACTIONS (4)
  - SKIN DISORDER [None]
  - SQUAMOUS CELL CARCINOMA [None]
  - THERAPEUTIC RESPONSE UNEXPECTED [None]
  - VAGINAL INFLAMMATION [None]
